FAERS Safety Report 4480826-9 (Version None)
Quarter: 2004Q4

REPORT INFORMATION
  Report Type: 
  Country: None (occurrence: None)
  Receive Date: 20041020
  Receipt Date: 20041020
  Transmission Date: 20050328
  Serious: No
  Sender: FDA-Public Use
  Company Number: None

PATIENT
  Age: 33 Year
  Sex: Female

DRUGS (3)
  1. CEFAZOLIN [Suspect]
     Indication: CELLULITIS
     Dosage: 1 GRAM IV X 1
     Route: 042
     Dates: start: 20041016
  2. BIRTH CONTROL PILL [Concomitant]
  3. PAXIL [Concomitant]

REACTIONS (5)
  - CONVULSION [None]
  - INFUSION RELATED REACTION [None]
  - INFUSION SITE REACTION [None]
  - PARAESTHESIA [None]
  - TONIC CLONIC MOVEMENTS [None]
